FAERS Safety Report 14265372 (Version 1)
Quarter: 2017Q4

REPORT INFORMATION
  Report Type: Spontaneous
  Country: US (occurrence: US)
  Receive Date: 20171208
  Receipt Date: 20171208
  Transmission Date: 20180321
  Serious: Yes (Hospitalization, Other)
  Sender: FDA-Public Use
  Company Number: US-NOVOPROD-575650

PATIENT
  Age: 60 Year
  Sex: Female

DRUGS (1)
  1. VAGIFEM LD [Suspect]
     Active Substance: ESTRADIOL
     Indication: ATROPHIC VULVOVAGINITIS
     Dosage: TWICE WEEKLY
     Route: 067
     Dates: start: 2008, end: 2017

REACTIONS (2)
  - CREST syndrome [Not Recovered/Not Resolved]
  - Uterine cancer [Recovering/Resolving]

NARRATIVE: CASE EVENT DATE: 2017
